FAERS Safety Report 13632220 (Version 1)
Quarter: 2017Q2

REPORT INFORMATION
  Report Type: Spontaneous
  Country: US (occurrence: US)
  Receive Date: 20170531
  Receipt Date: 20170531
  Transmission Date: 20170830
  Serious: No
  Sender: FDA-Public Use
  Company Number: US-ASTELLAS-1448136

PATIENT
  Sex: Female

DRUGS (16)
  1. PROPANOLOL HYDROCHLORIDE [Concomitant]
     Active Substance: PROPRANOLOL HYDROCHLORIDE
  2. FENOFIBRIC ACID. [Concomitant]
     Active Substance: FENOFIBRIC ACID
  3. ZOCOR [Concomitant]
     Active Substance: SIMVASTATIN
  4. NAPROXEN. [Suspect]
     Active Substance: NAPROXEN
     Indication: PRODUCT USED FOR UNKNOWN INDICATION
     Route: 065
  5. CYMBALTA [Concomitant]
     Active Substance: DULOXETINE HYDROCHLORIDE
  6. HOMATROPINE/HYDROCODONE [Concomitant]
  7. DULOXETINE HYDROCHLORIDE. [Concomitant]
     Active Substance: DULOXETINE HYDROCHLORIDE
  8. VALSARTAN HCTZ [Concomitant]
     Active Substance: HYDROCHLOROTHIAZIDE\VALSARTAN
  9. INDERAL LA [Concomitant]
     Active Substance: PROPRANOLOL HYDROCHLORIDE
  10. TARCEVA [Suspect]
     Active Substance: ERLOTINIB HYDROCHLORIDE
     Indication: LUNG NEOPLASM MALIGNANT
     Dosage: FREQUENCY: DAILY
     Route: 048
     Dates: start: 20140512
  11. TRILIPIX [Concomitant]
     Active Substance: FENOFIBRIC ACID
  12. ATIVAN [Concomitant]
     Active Substance: LORAZEPAM
  13. LORAZEPAM. [Concomitant]
     Active Substance: LORAZEPAM
  14. TRAMADOL HCL [Concomitant]
     Active Substance: TRAMADOL HYDROCHLORIDE
  15. DIOVAN [Concomitant]
     Active Substance: VALSARTAN
  16. HYDROCODONE/ACETAMINOPHEN [Concomitant]
     Active Substance: ACETAMINOPHEN\HYDROCODONE

REACTIONS (5)
  - Pruritus [Unknown]
  - Glossodynia [Unknown]
  - Nasal dryness [Unknown]
  - Diarrhoea [Unknown]
  - Dry skin [Unknown]
